FAERS Safety Report 8579548 (Version 4)
Quarter: 2013Q4

REPORT INFORMATION
  Report Type: Spontaneous
  Country: AR (occurrence: AR)
  Receive Date: 20120525
  Receipt Date: 20131205
  Transmission Date: 20140711
  Serious: Yes (Other)
  Sender: FDA-Public Use
  Company Number: AR-AMGEN-ARGSP2012031525

PATIENT
  Age: 59 Year
  Sex: Female

DRUGS (2)
  1. ENBREL [Suspect]
     Indication: RHEUMATOID ARTHRITIS
     Dosage: 50 MG, WEEKLY
     Route: 058
     Dates: start: 20080829
  2. ENBREL [Suspect]
     Dosage: 25 MG, WEEKLY
     Route: 065

REACTIONS (4)
  - Osteonecrosis [Recovered/Resolved]
  - Meniscus injury [Recovered/Resolved]
  - Red blood cell count increased [Unknown]
  - Disease progression [Unknown]
